FAERS Safety Report 5842566-0 (Version None)
Quarter: 2008Q3

REPORT INFORMATION
  Report Type: 
  Country: None (occurrence: None)
  Receive Date: 20080812
  Receipt Date: 20080731
  Transmission Date: 20090109
  Serious: Yes (Death, Hospitalization)
  Sender: FDA-Public Use
  Company Number: IT-PFIZER INC-2008064598

PATIENT
  Sex: Female

DRUGS (7)
  1. AROMASIN [Suspect]
     Indication: BREAST CANCER
     Route: 048
  2. PRINZIDE [Concomitant]
     Dosage: FREQ:1 UNIT DOSE (20MG+12.5 MG)
  3. NEBILOX [Concomitant]
  4. LASIX [Concomitant]
  5. ZOLOFT [Concomitant]
  6. GLURENOR [Concomitant]
  7. COUMADIN [Concomitant]

REACTIONS (7)
  - ACIDOSIS [None]
  - ASTHENIA [None]
  - HEPATIC FAILURE [None]
  - HEPATITIS [None]
  - MALAISE [None]
  - SHOCK [None]
  - VOMITING [None]
